FAERS Safety Report 7331675-5 (Version None)
Quarter: 2011Q1

REPORT INFORMATION
  Report Type: 
  Country: None (occurrence: None)
  Receive Date: 20110304
  Receipt Date: 20101102
  Transmission Date: 20110831
  Serious: No
  Sender: FDA-Public Use
  Company Number: US-BAYER-201039583NA

PATIENT
  Age: 92 Year
  Sex: Female

DRUGS (1)
  1. AVELOX [Suspect]

REACTIONS (1)
  - ABDOMINAL PAIN [None]
